FAERS Safety Report 7204246-9 (Version None)
Quarter: 2010Q4

REPORT INFORMATION
  Report Type: 
  Country: None (occurrence: None)
  Receive Date: 20101230
  Receipt Date: 20101227
  Transmission Date: 20110411
  Serious: Yes (Other)
  Sender: FDA-Public Use
  Company Number: NL-PFIZER INC-2010179933

PATIENT
  Age: 94 Year
  Sex: Female

DRUGS (1)
  1. LYRICA [Suspect]
     Indication: NEURALGIA
     Dosage: 75 MG, 1X/DAY
     Dates: start: 20101215

REACTIONS (4)
  - ERYTHEMA [None]
  - GLOMERULAR FILTRATION RATE DECREASED [None]
  - HYPERSENSITIVITY [None]
  - SKIN EXFOLIATION [None]
